FAERS Safety Report 17405989 (Version 1)
Quarter: 2020Q1

REPORT INFORMATION
  Report Type: Spontaneous
  Country: US (occurrence: US)
  Receive Date: 20200128
  Receipt Date: 20200128
  Transmission Date: 20200409
  Serious: No
  Sender: FDA-Public Use
  Company Number: None

PATIENT
  Age: 41 Year
  Sex: Male

DRUGS (1)
  1. CREON [Suspect]
     Active Substance: PANCRELIPASE AMYLASE\PANCRELIPASE LIPASE\PANCRELIPASE PROTEASE
     Dosage: ?          OTHER DOSE:2400 UNITS X20DAY;OTHER FREQUENCY:UNKNOWN;?
     Route: 048
     Dates: start: 201807

REACTIONS (2)
  - Cystic fibrosis [None]
  - Cough [None]

NARRATIVE: CASE EVENT DATE: 20200109
